FAERS Safety Report 4528703-9 (Version None)
Quarter: 2004Q4

REPORT INFORMATION
  Report Type: 
  Country: None (occurrence: None)
  Receive Date: 20041202
  Receipt Date: 20040819
  Transmission Date: 20050328
  Serious: No
  Sender: FDA-Public Use
  Company Number: 200418877BWH

PATIENT
  Age: 73 Year
  Sex: Male
  Weight: 62.5964 kg

DRUGS (3)
  1. LEVITRA [Suspect]
     Indication: ERECTILE DYSFUNCTION
     Dosage: 10 MG, PRN, ORAL
     Route: 048
     Dates: start: 20040101
  2. MULTIVITAMIN [Concomitant]
  3. FLOMAX [Concomitant]

REACTIONS (1)
  - PARAESTHESIA [None]
